FAERS Safety Report 7457234-1 (Version None)
Quarter: 2011Q2

REPORT INFORMATION
  Report Type: 
  Country: None (occurrence: None)
  Receive Date: 20110426
  Receipt Date: 20110411
  Transmission Date: 20111010
  Serious: Yes (Other)
  Sender: FDA-Public Use
  Company Number: 2011MA003695

PATIENT
  Age: 71 Year
  Sex: Female

DRUGS (2)
  1. METHYLPEDNISOLONE SODIUM SUCCINATE [Concomitant]
  2. LIDOCAINE HCL [Suspect]
     Indication: OCCIPITAL NEURALGIA
     Dosage: 1X;INJ

REACTIONS (4)
  - DYSARTHRIA [None]
  - ASTERIXIS [None]
  - HYPERTENSION [None]
  - HYPOAESTHESIA [None]
